FAERS Safety Report 8378359-2 (Version None)
Quarter: 2012Q2

REPORT INFORMATION
  Report Type: 
  Country: None (occurrence: None)
  Receive Date: 20120522
  Receipt Date: 20120517
  Transmission Date: 20120825
  Serious: Yes (Life-Threatening, Hospitalization, Other)
  Sender: FDA-Public Use
  Company Number: US-ELI_LILLY_AND_COMPANY-US201203007903

PATIENT
  Sex: Male

DRUGS (6)
  1. BYETTA [Concomitant]
  2. HUMULIN N [Suspect]
     Indication: DIABETES MELLITUS
     Dosage: 10 MG, QD
     Dates: start: 20010101
  3. GLIPIRIDE [Concomitant]
     Indication: DIABETES MELLITUS
     Dosage: 4 MG, UNKNOWN
  4. LANTUS [Concomitant]
     Indication: DIABETES MELLITUS
     Dosage: 30 U, EACH EVENING
  5. METFORMIN HCL [Concomitant]
     Indication: DIABETES MELLITUS
     Dosage: 500 MG, BID
     Dates: start: 20040101
  6. METFORMIN HCL [Concomitant]
     Dosage: 500 MG, BID

REACTIONS (6)
  - SOMNOLENCE [None]
  - FEELING ABNORMAL [None]
  - MYOCARDIAL INFARCTION [None]
  - HYPOGLYCAEMIA [None]
  - GLYCOSYLATED HAEMOGLOBIN INCREASED [None]
  - ASTHENIA [None]
